FAERS Safety Report 24313124 (Version 2)
Quarter: 2024Q4

REPORT INFORMATION
  Report Type: Report from Study
  Country: AU (occurrence: AU)
  Receive Date: 20240912
  Receipt Date: 20241107
  Transmission Date: 20250115
  Serious: Yes (Other)
  Sender: NOVARTIS
  Company Number: AU-002147023-NVSC2024AU062191

PATIENT
  Sex: Female

DRUGS (1)
  1. KESIMPTA [Suspect]
     Active Substance: OFATUMUMAB
     Indication: Relapsing-remitting multiple sclerosis
     Dosage: 20 MG, QMO
     Route: 058
     Dates: start: 20240212, end: 202406

REACTIONS (6)
  - Colitis ulcerative [Unknown]
  - Pneumonia [Unknown]
  - Groin abscess [Unknown]
  - Influenza [Unknown]
  - Fungal skin infection [Unknown]
  - Post procedural infection [Unknown]

NARRATIVE: CASE EVENT DATE: 20240101
